FAERS Safety Report 15239126 (Version 1)
Quarter: 2018Q3

REPORT INFORMATION
  Report Type: Report from Study
  Country: US (occurrence: US)
  Receive Date: 20180803
  Receipt Date: 20180803
  Transmission Date: 20181010
  Serious: Yes (Hospitalization, Other)
  Sender: FDA-Public Use
  Company Number: US-BAYER-2017-107737

PATIENT
  Age: 68 Year
  Sex: Female

DRUGS (15)
  1. STIVARGA [Suspect]
     Active Substance: REGORAFENIB
     Indication: RECTAL ADENOCARCINOMA
  2. STIVARGA [Suspect]
     Active Substance: REGORAFENIB
     Indication: METASTASES TO LIVER
  3. METOPROLOL. [Concomitant]
     Active Substance: METOPROLOL
  4. STIVARGA [Suspect]
     Active Substance: REGORAFENIB
     Indication: COLON CANCER
     Dosage: 160 MG, QD
     Route: 048
     Dates: start: 20170509
  5. STIVARGA [Suspect]
     Active Substance: REGORAFENIB
     Indication: METASTASES TO BILIARY TRACT
  6. XARELTO [Concomitant]
     Active Substance: RIVAROXABAN
     Indication: PULMONARY EMBOLISM
  7. NEURONTIN [Concomitant]
     Active Substance: GABAPENTIN
  8. STIVARGA [Suspect]
     Active Substance: REGORAFENIB
     Indication: METASTASES TO LUNG
     Dosage: 120 MG, QD
     Route: 048
     Dates: start: 2017, end: 20180309
  9. LISINOPRIL. [Concomitant]
     Active Substance: LISINOPRIL
  10. FOLIC ACID. [Concomitant]
     Active Substance: FOLIC ACID
  11. STIVARGA [Suspect]
     Active Substance: REGORAFENIB
     Indication: ANAL CANCER
  12. PROTONIX [Concomitant]
     Active Substance: PANTOPRAZOLE SODIUM
  13. LASIX [Concomitant]
     Active Substance: FUROSEMIDE
  14. MIRALAX [Concomitant]
     Active Substance: POLYETHYLENE GLYCOL 3350
  15. REGLAN [Concomitant]
     Active Substance: METOCLOPRAMIDE HYDROCHLORIDE

REACTIONS (26)
  - Hydronephrosis [None]
  - Gastrooesophageal reflux disease [None]
  - Blood pressure increased [Not Recovered/Not Resolved]
  - Rash generalised [None]
  - Aphonia [None]
  - Anxiety [None]
  - Renal failure [None]
  - Nephrolithiasis [None]
  - Renal tubular necrosis [Recovered/Resolved]
  - Pyrexia [Recovered/Resolved]
  - Pyrexia [None]
  - Dysphonia [None]
  - Haematuria [Recovered/Resolved]
  - Malignant pleural effusion [None]
  - Anuria [None]
  - Dyspnoea [Recovered/Resolved]
  - Depression [None]
  - Dyspnoea [None]
  - Infection [None]
  - Hyperhidrosis [Recovered/Resolved]
  - Rash [None]
  - Blood creatinine increased [Recovered/Resolved]
  - Oedema peripheral [None]
  - Tubulointerstitial nephritis [None]
  - Rash [Recovered/Resolved]
  - Arteriosclerosis [None]

NARRATIVE: CASE EVENT DATE: 201709
